FAERS Safety Report 7300030-6 (Version None)
Quarter: 2011Q1

REPORT INFORMATION
  Report Type: 
  Country: None (occurrence: None)
  Receive Date: 20110208
  Receipt Date: 20110128
  Transmission Date: 20110831
  Serious: Yes (Hospitalization)
  Sender: FDA-Public Use
  Company Number: 2011-001

PATIENT

DRUGS (1)
  1. LACTULOSE [Suspect]

REACTIONS (2)
  - NAUSEA [None]
  - VOMITING [None]
